FAERS Safety Report 20954455 (Version 2)
Quarter: 2022Q2

REPORT INFORMATION
  Report Type: Report from Study
  Country: US (occurrence: None)
  Receive Date: 20220614
  Receipt Date: 20220615
  Transmission Date: 20220721
  Serious: Yes (Hospitalization, Other)
  Sender: FDA-Public Use
  Company Number: US-MDD US Operations-MDD202103-000486

PATIENT
  Age: 77 Year
  Sex: Female

DRUGS (18)
  1. APOKYN [Suspect]
     Active Substance: APOMORPHINE HYDROCHLORIDE
     Indication: Parkinson^s disease
     Dosage: UPTO 0.1 ML
     Route: 058
  2. APOKYN [Suspect]
     Active Substance: APOMORPHINE HYDROCHLORIDE
     Dosage: UPTO 0.1 ML
     Route: 058
  3. NOVOLIN 70/30 [Concomitant]
     Active Substance: INSULIN HUMAN
     Dosage: 70-30/ML
  4. FLOVENT HFA [Concomitant]
     Active Substance: FLUTICASONE PROPIONATE
  5. CINNAMON [Concomitant]
     Active Substance: CINNAMON
     Dosage: NOT PROVIDED
  6. AMANTADINE [Concomitant]
     Active Substance: AMANTADINE
     Dosage: NOT PROVIDED
  7. SINEMET [Concomitant]
     Active Substance: CARBIDOPA\LEVODOPA
     Dosage: 10MG-100MG
  8. TOPROL XL [Concomitant]
     Active Substance: METOPROLOL SUCCINATE
     Dosage: NOT PROVIDED
  9. METFORMIN [Concomitant]
     Active Substance: METFORMIN HYDROCHLORIDE
     Dosage: NOT PROVIDED
  10. DILANTIN [Concomitant]
     Active Substance: PHENYTOIN
     Dosage: NOT PROVIDED
  11. VITAMIN D2 [Concomitant]
     Active Substance: ERGOCALCIFEROL
     Dosage: NOT PROVIDED
  12. MICARDIS [Concomitant]
     Active Substance: TELMISARTAN
     Dosage: NOT PROVIDED
  13. PLAVIX [Concomitant]
     Active Substance: CLOPIDOGREL BISULFATE
     Dosage: NOT PROVIDED
  14. LIPITOR [Concomitant]
     Active Substance: ATORVASTATIN CALCIUM
     Dosage: NOT PROVIDED
  15. AZILECT [Concomitant]
     Active Substance: RASAGILINE MESYLATE
     Dosage: NOT PROVIDED
  16. SINGULAIR [Concomitant]
     Active Substance: MONTELUKAST SODIUM
     Dosage: NOT PROVIDED
  17. ASPIRIN [Concomitant]
     Active Substance: ASPIRIN
     Dosage: NOT PROVIDED
  18. RABEPRAZOLE SODIUM [Concomitant]
     Active Substance: RABEPRAZOLE SODIUM
     Dosage: NOT PROVIDED

REACTIONS (7)
  - Cataract operation [Unknown]
  - Malaise [Unknown]
  - Head injury [Unknown]
  - Fall [Unknown]
  - Somnolence [Not Recovered/Not Resolved]
  - Rhinorrhoea [Not Recovered/Not Resolved]
  - Peripheral swelling [Not Recovered/Not Resolved]
